FAERS Safety Report 9258340 (Version 1)
Quarter: 2013Q2

REPORT INFORMATION
  Report Type: Spontaneous
  Country: US (occurrence: US)
  Receive Date: 20130426
  Receipt Date: 20130426
  Transmission Date: 20140414
  Serious: No
  Sender: FDA-Public Use
  Company Number: US-009507513-1304USA014376

PATIENT
  Age: 44 Year
  Sex: Male

DRUGS (21)
  1. MAXALT [Suspect]
     Indication: MIGRAINE
     Dosage: 10 MG, PRN
     Route: 048
  2. SULFASALAZINE [Concomitant]
  3. IBUPROFEN [Concomitant]
  4. NORCO [Concomitant]
  5. XANAX [Concomitant]
  6. CRESTOR [Concomitant]
  7. CELEXA [Concomitant]
  8. LAMICTAL [Concomitant]
  9. NEXIUM [Concomitant]
  10. PHENERGAN (PROMETHAZINE HYDROCHLORIDE) [Concomitant]
  11. NEURONTIN [Concomitant]
  12. ADVAIR [Concomitant]
  13. PROAIR (ALBUTEROL SULFATE) [Concomitant]
  14. BETAMETHASONE DIPROPIONATE [Concomitant]
  15. OXYGEN [Concomitant]
  16. IPRATROPIUM BROMIDE (+) LEVALBUTEROL [Concomitant]
  17. ALBUTEROL SULFATE [Concomitant]
  18. SPIRIVA [Concomitant]
  19. ANTIPYRINE (+) BENZOCAINE [Concomitant]
  20. CIPROFLOXACIN [Concomitant]
  21. PREDNISONE ACETATE [Concomitant]

REACTIONS (5)
  - Optic nerve neoplasm [Not Recovered/Not Resolved]
  - Middle ear effusion [Not Recovered/Not Resolved]
  - Pain [Not Recovered/Not Resolved]
  - Insomnia [Not Recovered/Not Resolved]
  - Therapeutic response decreased [Unknown]
